FAERS Safety Report 9676353 (Version 1)
Quarter: 2013Q4

REPORT INFORMATION
  Report Type: Spontaneous
  Country: US (occurrence: None)
  Receive Date: 20131106
  Receipt Date: 20131106
  Transmission Date: 20140711
  Serious: Yes (Hospitalization)
  Sender: FDA-Public Use
  Company Number: 2013AP009479

PATIENT
  Age: 14 Year
  Sex: Female

DRUGS (3)
  1. BUPROPION HYDROCHLORIDE TABLETS [Suspect]
     Dosage: 9 G;UNK;PO
     Route: 048
  2. HYDROXYZINE [Concomitant]
  3. CITALOPRAM [Concomitant]

REACTIONS (10)
  - Convulsion [None]
  - Metabolic acidosis [None]
  - Hypotension [None]
  - Overdose [None]
  - Electrocardiogram QT prolonged [None]
  - Electrocardiogram QRS complex prolonged [None]
  - Hypotension [None]
  - Hypertriglyceridaemia [None]
  - Hyperlipidaemia [None]
  - Pancreatitis [None]
